FAERS Safety Report 9242173 (Version 1)
Quarter: 2013Q2

REPORT INFORMATION
  Report Type: Spontaneous
  Country: US (occurrence: US)
  Receive Date: 20130419
  Receipt Date: 20130419
  Transmission Date: 20140414
  Serious: Yes (Other)
  Sender: FDA-Public Use
  Company Number: US-JNJFOC-20130407344

PATIENT
  Age: 52 Year
  Sex: Female
  Weight: 72.58 kg

DRUGS (2)
  1. ELMIRON [Suspect]
     Indication: CYSTITIS INTERSTITIAL
     Route: 048
     Dates: start: 20130208
  2. ENALAPRIL [Concomitant]
     Indication: BLOOD PRESSURE
     Route: 048

REACTIONS (4)
  - Suicidal ideation [Not Recovered/Not Resolved]
  - Homicidal ideation [Not Recovered/Not Resolved]
  - Metal poisoning [Unknown]
  - Wrong technique in drug usage process [Not Recovered/Not Resolved]
